FAERS Safety Report 7991205-1 (Version None)
Quarter: 2011Q4

REPORT INFORMATION
  Report Type: 
  Country: None (occurrence: None)
  Receive Date: 20111219
  Receipt Date: 20110201
  Transmission Date: 20120403
  Serious: Yes (Hospitalization)
  Sender: FDA-Public Use
  Company Number: US-GLAXOSMITHKLINE-A0911490A

PATIENT
  Sex: Male

DRUGS (1)
  1. AVANDIA [Suspect]
     Indication: DIABETES MELLITUS
     Dosage: 4MG TWICE PER DAY
     Route: 048
     Dates: start: 19991012, end: 20090901

REACTIONS (7)
  - CARDIAC FAILURE CONGESTIVE [None]
  - SYNCOPE [None]
  - CORONARY ARTERY DISEASE [None]
  - MYOCARDIAL INFARCTION [None]
  - BLOOD GLUCOSE DECREASED [None]
  - FATIGUE [None]
  - ISCHAEMIC CARDIOMYOPATHY [None]
